FAERS Safety Report 19224950 (Version 1)
Quarter: 2021Q2

REPORT INFORMATION
  Report Type: Spontaneous
  Country: US (occurrence: US)
  Receive Date: 20210505
  Receipt Date: 20210505
  Transmission Date: 20210717
  Serious: No
  Sender: FDA-Public Use
  Company Number: US-ROCHE-2687806

PATIENT
  Sex: Female

DRUGS (4)
  1. ESBRIET [Suspect]
     Active Substance: PIRFENIDONE
     Indication: IDIOPATHIC PULMONARY FIBROSIS
     Dosage: FOR ONE WEEK ;ONGOING: NO
     Route: 048
     Dates: start: 202008
  2. ESBRIET [Suspect]
     Active Substance: PIRFENIDONE
     Dosage: THREE 267 MG TABLETS PER DOSE FOR ONE WEEK ;ONGOING: NO
     Route: 048
  3. ESBRIET [Suspect]
     Active Substance: PIRFENIDONE
     Dosage: TWO?267 MG TABLETS PER DOSE FOR ONE WEEK ;ONGOING: NO
     Route: 048
  4. ESBRIET [Suspect]
     Active Substance: PIRFENIDONE
     Dosage: ONE TABLET PER DOSE ;ONGOING: YES
     Route: 048

REACTIONS (3)
  - Fatigue [Not Recovered/Not Resolved]
  - Sensory disturbance [Not Recovered/Not Resolved]
  - Taste disorder [Not Recovered/Not Resolved]
